FAERS Safety Report 8326563-1 (Version None)
Quarter: 2012Q2

REPORT INFORMATION
  Report Type: 
  Country: None (occurrence: None)
  Receive Date: 20120501
  Receipt Date: 20120420
  Transmission Date: 20120825
  Serious: Yes (Hospitalization)
  Sender: FDA-Public Use
  Company Number: BE-JNJFOC-20110711000

PATIENT
  Age: 58 Year
  Sex: Male
  Weight: 83 kg

DRUGS (4)
  1. HUMIRA [Concomitant]
     Indication: CROHN'S DISEASE
  2. REMICADE [Suspect]
     Route: 042
     Dates: start: 20101124
  3. REMICADE [Suspect]
     Route: 042
     Dates: start: 20100922
  4. REMICADE [Suspect]
     Indication: CROHN'S DISEASE
     Route: 042
     Dates: start: 20100728

REACTIONS (1)
  - ILEOCOLECTOMY [None]
